FAERS Safety Report 13138643 (Version 2)
Quarter: 2018Q1

REPORT INFORMATION
  Report Type: Spontaneous
  Country: US (occurrence: US)
  Receive Date: 20170123
  Receipt Date: 20180125
  Transmission Date: 20180508
  Serious: No
  Sender: FDA-Public Use
  Company Number: US-UNITED THERAPEUTICS-UNT-2016-011354

PATIENT
  Age: 29 Year
  Sex: Female
  Weight: 88.44 kg

DRUGS (5)
  1. COUMADIN [Concomitant]
     Active Substance: WARFARIN SODIUM
     Indication: PRODUCT USED FOR UNKNOWN INDICATION
     Route: 065
  2. OPSUMIT [Concomitant]
     Active Substance: MACITENTAN
     Indication: PRODUCT USED FOR UNKNOWN INDICATION
     Route: 065
  3. REMODULIN [Suspect]
     Active Substance: TREPROSTINIL
     Indication: PULMONARY ARTERIAL HYPERTENSION
     Dosage: 0.043 ?G/KG, CONTINUING
     Route: 058
     Dates: start: 20160429, end: 201608
  4. REMODULIN [Suspect]
     Active Substance: TREPROSTINIL
     Dosage: UNK
     Route: 058
  5. ADCIRCA [Concomitant]
     Active Substance: TADALAFIL
     Indication: PRODUCT USED FOR UNKNOWN INDICATION
     Route: 065

REACTIONS (8)
  - Infusion site pain [Unknown]
  - Infusion site erythema [Unknown]
  - Headache [Unknown]
  - Erythema [Unknown]
  - Pain in jaw [Unknown]
  - Infusion site abscess [Unknown]
  - Infusion site inflammation [Unknown]
  - Infusion site infection [Unknown]

NARRATIVE: CASE EVENT DATE: 201607
